FAERS Safety Report 10258631 (Version 1)
Quarter: 2014Q2

REPORT INFORMATION
  Report Type: Spontaneous
  Country: US (occurrence: None)
  Receive Date: 20140624
  Receipt Date: 20140624
  Transmission Date: 20141212
  Serious: No
  Sender: FDA-Public Use
  Company Number: None

PATIENT
  Age: 44 Year
  Sex: Female

DRUGS (1)
  1. SOLESTA [Suspect]

REACTIONS (4)
  - Haemorrhage [None]
  - Injection site pain [None]
  - Sleep disorder [None]
  - Perirectal abscess [None]
